FAERS Safety Report 6066220-8 (Version None)
Quarter: 2009Q1

REPORT INFORMATION
  Report Type: 
  Country: None (occurrence: None)
  Receive Date: 20090205
  Receipt Date: 20090202
  Transmission Date: 20090719
  Serious: Yes (Death)
  Sender: FDA-Public Use
  Company Number: PHHY2009JP03277

PATIENT
  Age: 54 Year
  Sex: Female

DRUGS (5)
  1. CYCLOSPORINE [Suspect]
     Indication: CORD BLOOD TRANSPLANT THERAPY
     Dosage: UNK
  2. CYCLOSPORINE [Suspect]
     Indication: PROPHYLAXIS AGAINST GRAFT VERSUS HOST DISEASE
  3. METHOTREXATE [Suspect]
     Indication: CORD BLOOD TRANSPLANT THERAPY
     Dosage: UNK
  4. METHOTREXATE [Suspect]
     Indication: PROPHYLAXIS AGAINST GRAFT VERSUS HOST DISEASE
  5. CYCLOPHOSPHAMIDE [Concomitant]
     Indication: CORD BLOOD TRANSPLANT THERAPY
     Dosage: UNK

REACTIONS (9)
  - ADENOVIRAL HAEMORRHAGIC CYSTITIS [None]
  - DYSPNOEA [None]
  - DYSURIA [None]
  - HAEMATURIA [None]
  - HYDRONEPHROSIS [None]
  - MECHANICAL VENTILATION [None]
  - PNEUMONIA ADENOVIRAL [None]
  - POSTRENAL FAILURE [None]
  - RENAL IMPAIRMENT [None]
